FAERS Safety Report 4828441-9 (Version None)
Quarter: 2005Q4

REPORT INFORMATION
  Report Type: 
  Country: None (occurrence: None)
  Receive Date: 20051109
  Receipt Date: 20051028
  Transmission Date: 20060501
  Serious: Yes (Hospitalization)
  Sender: FDA-Public Use
  Company Number: 200511008BVD

PATIENT
  Age: 77 Year
  Sex: Female
  Weight: 70 kg

DRUGS (13)
  1. GAMUNEX [Suspect]
     Dosage: SEE IMAGE
     Route: 042
     Dates: start: 20050509
  2. GAMUNEX [Suspect]
     Dosage: SEE IMAGE
     Route: 042
     Dates: start: 20050510
  3. GAMUNEX [Suspect]
  4. 05112005 [Suspect]
     Dates: start: 20050511
  5. 05112005 [Suspect]
     Dates: start: 20050512
  6. 05112005 [Suspect]
     Dates: start: 20050513
  7. GAMUNEX [Suspect]
  8. HYDROCHLOROTHIAZIDE [Concomitant]
  9. LISINOPRIL [Concomitant]
  10. AMLODIPINE [Concomitant]
  11. DECOTRIN H [Concomitant]
  12. IMUREX [Concomitant]
  13. ACTRAPHANE [Concomitant]

REACTIONS (1)
  - CARDIAC FAILURE [None]
